FAERS Safety Report 10732166 (Version 1)
Quarter: 2015Q1

REPORT INFORMATION
  Report Type: Spontaneous
  Country: US (occurrence: None)
  Receive Date: 20150120
  Receipt Date: 20150120
  Transmission Date: 20150721
  Serious: Yes (Death)
  Sender: FDA-Public Use
  Company Number: 2015010084

PATIENT
  Age: 32 Year
  Sex: Male

DRUGS (6)
  1. CYCLOBENAPRINE HYDROCHLORIDE [Suspect]
     Active Substance: CYCLOBENZAPRINE HYDROCHLORIDE
  2. METHADONE [Suspect]
     Active Substance: METHADONE HYDROCHLORIDE
  3. FENTANYL (FENTANYL) [Suspect]
     Active Substance: FENTANYL
  4. DOXYLAMINE (DOXYLAMINE) [Suspect]
     Active Substance: DOXYLAMINE
  5. METHAMPHETAMINE (METHAMPHETAMINE) [Suspect]
     Active Substance: METHAMPHETAMINE
  6. OPIOID [Suspect]
     Active Substance: UNSPECIFIED INGREDIENT

REACTIONS (1)
  - Death [None]

NARRATIVE: CASE EVENT DATE: 2013
